FAERS Safety Report 4341921-8 (Version None)
Quarter: 2004Q2

REPORT INFORMATION
  Report Type: 
  Country: None (occurrence: None)
  Receive Date: 20040413
  Receipt Date: 20040405
  Transmission Date: 20050107
  Serious: Yes (Hospitalization)
  Sender: FDA-Public Use
  Company Number: US-JNJFOC-20040401472

PATIENT

DRUGS (1)
  1. DURAGESIC [Suspect]
     Dosage: 75 UG/HR, 1 IN 72 HOUR

REACTIONS (2)
  - LOSS OF CONSCIOUSNESS [None]
  - MEDICATION ERROR [None]
